FAERS Safety Report 4863537-7 (Version None)
Quarter: 2005Q4

REPORT INFORMATION
  Report Type: 
  Country: None (occurrence: None)
  Receive Date: 20051222
  Receipt Date: 20050413
  Transmission Date: 20060501
  Serious: No
  Sender: FDA-Public Use
  Company Number: US-GLAXOSMITHKLINE-A0553993A

PATIENT
  Age: 82 Year
  Sex: Female

DRUGS (6)
  1. FLONASE [Suspect]
     Indication: MULTIPLE ALLERGIES
     Dosage: 2SPR PER DAY
     Route: 045
     Dates: start: 20040101, end: 20050101
  2. ALLEGRA [Concomitant]
  3. ATENOLOL [Concomitant]
  4. NAPROXEN SODIUM [Concomitant]
  5. PROTONIX [Concomitant]
  6. MIRALAX [Concomitant]

REACTIONS (1)
  - EPISTAXIS [None]
